FAERS Safety Report 8070674-5 (Version None)
Quarter: 2012Q1

REPORT INFORMATION
  Report Type: 
  Country: None (occurrence: None)
  Receive Date: 20120125
  Receipt Date: 20120119
  Transmission Date: 20120608
  Serious: Yes (Other)
  Sender: FDA-Public Use
  Company Number: PHEH2011US011109

PATIENT
  Sex: Female

DRUGS (14)
  1. DETHANECHOL [Concomitant]
     Dosage: 10 MG, TID
  2. LEVOTHYROXINE SODIUM [Concomitant]
     Indication: THYROID DISORDER
     Dosage: 50 UKN, QD
  3. ZOLPIDEM [Concomitant]
     Indication: SLEEP DISORDER
     Dosage: 10 MG, 1XNIGHT
  4. SINGULAIR [Concomitant]
     Dosage: 10 MG, AT NIGHT
  5. TRAZODONE HCL [Concomitant]
     Dosage: 50 MG, 2XNIGHT
  6. GABAPENTIN [Concomitant]
     Dosage: 300 MG, QID
  7. NAMENDA [Concomitant]
     Dosage: 10 MG, BID
  8. FLUTICASONE PROPIONATE [Concomitant]
     Dosage: 50 MCP, 2 SPRAYS 1XDAILY
  9. EVAMIST [Concomitant]
     Dosage: 1.5 MG, 3 SPRAYS
  10. GILENYA [Suspect]
     Dosage: 0.5 MG, QD
     Route: 048
     Dates: start: 20110501
  11. CETIRIZINE HCL [Concomitant]
     Indication: DEPRESSION
     Dosage: 10 MG, AT NIGHT
  12. BUPROPION HYDROCHLORIDE [Concomitant]
     Dosage: 150 MG, BID
  13. PROAIR (FLUTICASONE PROPIONATE) [Concomitant]
     Dosage: 1 PUFF, 4-6 TIMES PRN
  14. HYDROCODONE BITARTRATE AND ACETAMINOPHEN [Concomitant]
     Indication: PAIN
     Dosage: 10/325 MG, PRN

REACTIONS (11)
  - DYSGRAPHIA [None]
  - STRESS [None]
  - DEPRESSION [None]
  - MALAISE [None]
  - ABASIA [None]
  - FALL [None]
  - HYPERSENSITIVITY [None]
  - EATING DISORDER [None]
  - WEIGHT DECREASED [None]
  - NAUSEA [None]
  - HEADACHE [None]
